FAERS Safety Report 13960527 (Version 1)
Quarter: 2017Q3

REPORT INFORMATION
  Report Type: Spontaneous
  Country: US (occurrence: US)
  Receive Date: 20170912
  Receipt Date: 20170912
  Transmission Date: 20171128
  Serious: No
  Sender: FDA-Public Use
  Company Number: US-ALLERGAN-1672611US

PATIENT
  Age: 38 Year
  Sex: Male
  Weight: 74.83 kg

DRUGS (5)
  1. BABY ASPIRIN [Concomitant]
     Active Substance: ASPIRIN
     Dosage: UNK
  2. LEXAPRO [Suspect]
     Active Substance: ESCITALOPRAM OXALATE
     Indication: ANXIETY
     Dosage: 5 MG, QD
     Route: 048
     Dates: start: 201609
  3. ATENOLOL. [Concomitant]
     Active Substance: ATENOLOL
     Indication: HYPERTENSION
     Dosage: 5 MG, QD
  4. LEXAPRO [Suspect]
     Active Substance: ESCITALOPRAM OXALATE
     Indication: DIZZINESS
     Dosage: 10 MG, QD
     Route: 048
     Dates: start: 2010, end: 201609
  5. LIPITOR [Concomitant]
     Active Substance: ATORVASTATIN CALCIUM
     Indication: BLOOD CHOLESTEROL INCREASED
     Dosage: UNK

REACTIONS (2)
  - Dizziness [Not Recovered/Not Resolved]
  - Off label use [Unknown]

NARRATIVE: CASE EVENT DATE: 201610
